FAERS Safety Report 4745820-9 (Version None)
Quarter: 2005Q3

REPORT INFORMATION
  Report Type: 
  Country: None (occurrence: None)
  Receive Date: 20050816
  Receipt Date: 20040903
  Transmission Date: 20060218
  Serious: No
  Sender: FDA-Public Use
  Company Number: US-BRISTOL-MYERS SQUIBB COMPANY-12694311

PATIENT
  Age: 71 Year

DRUGS (1)
  1. MUCOMYST [Suspect]
     Dosage: WAS SUPPOSED TO GET 600 MG TWICE DAILY FOR 3 DOSES, BUT TOOK TOTAL OF 18 GRAMS
     Route: 048

REACTIONS (3)
  - INCORRECT DOSE ADMINISTERED [None]
  - NO ADVERSE EFFECT [None]
  - OVERDOSE [None]
